FAERS Safety Report 8979522 (Version 4)
Quarter: 2013Q2

REPORT INFORMATION
  Report Type: Report from Study
  Country: IT (occurrence: IT)
  Receive Date: 20121221
  Receipt Date: 20130422
  Transmission Date: 20140414
  Serious: Yes (Other)
  Sender: FDA-Public Use
  Company Number: IT-ROCHE-1168668

PATIENT
  Age: 60 Year
  Sex: Male
  Weight: 88 kg

DRUGS (5)
  1. VEMURAFENIB [Suspect]
     Indication: MALIGNANT MELANOMA
     Route: 048
     Dates: start: 20121110
  2. INSULIN R [Concomitant]
     Indication: DIABETES MELLITUS
     Dosage: DOSE: 8 UI
     Route: 058
     Dates: start: 20121221
  3. INSULIN R [Concomitant]
     Dosage: DOSE:15 UI
     Route: 058
     Dates: start: 20121221
  4. INSULIN R [Concomitant]
     Dosage: DOSE:10 UI
     Route: 058
     Dates: start: 20121221
  5. INSULIN [Concomitant]
     Indication: DIABETES MELLITUS
     Dosage: DOSE:8 UI
     Route: 058
     Dates: start: 20121221

REACTIONS (8)
  - Hyperglycaemia [Recovered/Resolved]
  - Transitional cell carcinoma [Recovered/Resolved]
  - Fatigue [Recovered/Resolved]
  - Rash [Recovered/Resolved]
  - Dry skin [Recovered/Resolved]
  - Polyuria [Recovered/Resolved]
  - Polydipsia [Recovered/Resolved]
  - Vision blurred [Recovered/Resolved]
